FAERS Safety Report 5160192-6 (Version None)
Quarter: 2006Q4

REPORT INFORMATION
  Report Type: 
  Country: None (occurrence: None)
  Receive Date: 20061120
  Receipt Date: 20061106
  Transmission Date: 20070319
  Serious: Yes (Other)
  Sender: FDA-Public Use
  Company Number: FABR-11729

PATIENT
  Age: 36 Year
  Sex: Male
  Weight: 79.3795 kg

DRUGS (3)
  1. FABRAZYME [Suspect]
     Indication: FABRY'S DISEASE
     Dosage: 80 MG Q2WKS IV
     Route: 042
     Dates: start: 20041123
  2. FABRAZYME [Suspect]
     Indication: FABRY'S DISEASE
     Dosage: 0.9 MG/KG Q2WKS IV
     Route: 042
     Dates: start: 20000204, end: 20040928
  3. FABRAZYME [Suspect]
     Indication: FABRY'S DISEASE
     Dosage: 0.9 MG/KG Q2WKS IV
     Route: 042
     Dates: start: 19990709, end: 19991203

REACTIONS (5)
  - BLOOD CREATININE INCREASED [None]
  - BLOOD PRESSURE INCREASED [None]
  - HAEMOGLOBIN DECREASED [None]
  - MICROALBUMINURIA [None]
  - PAIN [None]
